FAERS Safety Report 18691197 (Version 2)
Quarter: 2021Q1

REPORT INFORMATION
  Report Type: Spontaneous
  Country: US (occurrence: US)
  Receive Date: 20210101
  Receipt Date: 20210212
  Transmission Date: 20210419
  Serious: Yes (Hospitalization, Other)
  Sender: FDA-Public Use
  Company Number: US-ASTRAZENECA-2020SF75473

PATIENT
  Age: 81 Year
  Sex: Female
  Weight: 39 kg

DRUGS (2)
  1. SYMBICORT [Suspect]
     Active Substance: BUDESONIDE\FORMOTEROL FUMARATE DIHYDRATE
     Indication: CHRONIC OBSTRUCTIVE PULMONARY DISEASE
     Dosage: 80/4.5MCG ,TWO TIMES A DAY
     Route: 055
  2. BOTOX [Concomitant]
     Active Substance: ONABOTULINUMTOXINA

REACTIONS (13)
  - Product use issue [Unknown]
  - Choking [Unknown]
  - Fall [Recovered/Resolved]
  - Feeling abnormal [Unknown]
  - Oesophageal disorder [Unknown]
  - Device malfunction [Unknown]
  - Dyspnoea [Unknown]
  - Hip fracture [Recovered/Resolved]
  - Feeding disorder [Unknown]
  - Back injury [Unknown]
  - Panic attack [Unknown]
  - Wrong technique in product usage process [Unknown]
  - Limb deformity [Unknown]

NARRATIVE: CASE EVENT DATE: 2007
